FAERS Safety Report 7772699-3 (Version None)
Quarter: 2011Q3

REPORT INFORMATION
  Report Type: 
  Country: None (occurrence: None)
  Receive Date: 20110922
  Receipt Date: 20110603
  Transmission Date: 20111222
  Serious: Yes (Other)
  Sender: FDA-Public Use
  Company Number: US-ASTRAZENECA-2009UW03144

PATIENT
  Age: 606 Month
  Sex: Female
  Weight: 93.9 kg

DRUGS (12)
  1. FLOVENT [Concomitant]
     Dates: start: 20090101
  2. NAPROXEN (ALEVE) [Concomitant]
     Indication: PAIN
     Dates: start: 20090101
  3. ELAVIL [Concomitant]
     Dates: start: 20090101
  4. ADDERALL 5 [Concomitant]
     Dates: start: 20070706
  5. SEROQUEL [Suspect]
     Route: 048
     Dates: start: 20070809
  6. ALBUTEROL [Concomitant]
     Dates: start: 20090101
  7. LIPITOR [Concomitant]
     Dates: start: 20090101
  8. TRICOR [Concomitant]
     Dates: start: 20090101
  9. AMBIEN [Concomitant]
     Dates: start: 20090101
  10. TYLENOL-500 [Concomitant]
     Indication: PAIN
     Dates: start: 20090101
  11. PROTONIX [Concomitant]
     Dates: start: 20070223
  12. KLONOPIN [Concomitant]
     Dates: start: 20070426

REACTIONS (3)
  - GLUCOSE TOLERANCE IMPAIRED [None]
  - PANCREATITIS [None]
  - DIABETES MELLITUS [None]
